FAERS Safety Report 5698176-1 (Version None)
Quarter: 2008Q2

REPORT INFORMATION
  Report Type: 
  Country: None (occurrence: None)
  Receive Date: 20080408
  Receipt Date: 20080327
  Transmission Date: 20081010
  Serious: Yes (Hospitalization, Other)
  Sender: FDA-Public Use
  Company Number: US-PFIZER INC-2008012787

PATIENT
  Sex: Female
  Weight: 95.3 kg

DRUGS (2)
  1. CHANTIX [Suspect]
     Indication: SMOKING CESSATION THERAPY
  2. SPIRIVA [Concomitant]

REACTIONS (15)
  - ANGER [None]
  - ANGINA PECTORIS [None]
  - ANOREXIA [None]
  - ANXIETY [None]
  - FEAR [None]
  - HALLUCINATION, AUDITORY [None]
  - HEART RATE DECREASED [None]
  - MENORRHAGIA [None]
  - MIDDLE INSOMNIA [None]
  - MYOCARDIAL INFARCTION [None]
  - NAUSEA [None]
  - OXYGEN SATURATION DECREASED [None]
  - PROCEDURAL PAIN [None]
  - STRESS [None]
  - VOMITING [None]
